FAERS Safety Report 12678166 (Version 1)
Quarter: 2016Q3

REPORT INFORMATION
  Report Type: Spontaneous
  Country: ZA (occurrence: ZA)
  Receive Date: 20160823
  Receipt Date: 20160823
  Transmission Date: 20161109
  Serious: Yes (Other)
  Sender: FDA-Public Use
  Company Number: ZA-BAYER-2016-156652

PATIENT

DRUGS (2)
  1. BONDRONAT [IBANDRONATE SODIUM] [Concomitant]
     Dosage: 50MG/D
  2. NEXAVAR [Suspect]
     Active Substance: SORAFENIB
     Indication: THYROID CANCER
     Route: 048

REACTIONS (9)
  - Rash pruritic [Recovered/Resolved]
  - Odynophagia [None]
  - Abdominal wall mass [None]
  - Oropharyngeal pain [Recovered/Resolved]
  - Glossodynia [None]
  - Pleurisy [Recovered/Resolved]
  - Chest pain [None]
  - Gastrooesophageal reflux disease [None]
  - Eating disorder [None]
